FAERS Safety Report 5814150-6 (Version None)
Quarter: 2008Q3

REPORT INFORMATION
  Report Type: 
  Country: None (occurrence: None)
  Receive Date: 20080715
  Receipt Date: 20080702
  Transmission Date: 20090109
  Serious: Yes (Hospitalization)
  Sender: FDA-Public Use
  Company Number: 14696

PATIENT
  Age: 27 Year
  Sex: Female

DRUGS (1)
  1. MORPHINE SULFATE [Suspect]
     Indication: PAIN MANAGEMENT
     Dosage: 60 MG BID ORALLY
     Route: 048
     Dates: start: 20080601

REACTIONS (3)
  - DRUG LEVEL INCREASED [None]
  - HALLUCINATION [None]
  - PHARMACEUTICAL PRODUCT COMPLAINT [None]
